FAERS Safety Report 10469637 (Version 2)
Quarter: 2015Q3

REPORT INFORMATION
  Report Type: Spontaneous
  Country: US (occurrence: None)
  Receive Date: 20140905
  Receipt Date: 20150902
  Transmission Date: 20151125
  Serious: Yes (Hospitalization)
  Sender: FDA-Public Use
  Company Number: A-NJ2014-96302

PATIENT
  Age: 27 Year
  Sex: Male

DRUGS (12)
  1. GABAPENTIN. [Concomitant]
     Active Substance: GABAPENTIN
  2. PROMETHAZINE [Concomitant]
     Active Substance: PROMETHAZINE\PROMETHAZINE HYDROCHLORIDE
  3. VIAGRA [Concomitant]
     Active Substance: SILDENAFIL CITRATE
  4. LETAIRIS [Concomitant]
     Active Substance: AMBRISENTAN
  5. CYCLOBENZAPRINE [Concomitant]
     Active Substance: CYCLOBENZAPRINE
  6. REVATIO (SILDENAFIL CITRATE) [Concomitant]
  7. VELETRI [Suspect]
     Active Substance: EPOPROSTENOL
     Indication: PULMONARY ARTERIAL HYPERTENSION
     Dosage: 16 NG/KG, PER MIN, INTRAVENOUS
     Route: 042
     Dates: start: 20131024
  8. POTASSIUM CHLORIDE. [Concomitant]
     Active Substance: POTASSIUM CHLORIDE
  9. NAFCILLIN [Concomitant]
     Active Substance: NAFCILLIN\NAFCILLIN SODIUM
  10. SPIRONOLACTONE. [Concomitant]
     Active Substance: SPIRONOLACTONE
  11. FUROSEMIDE. [Concomitant]
     Active Substance: FUROSEMIDE
  12. HYDROCODONE/ACETAMINOPHEN (HYDROCODONE, PARACETAMOL) [Concomitant]

REACTIONS (4)
  - Haemoptysis [None]
  - Chest pain [None]
  - Dyspnoea [None]
  - Anxiety [None]

NARRATIVE: CASE EVENT DATE: 20140309
